FAERS Safety Report 19768507 (Version 1)
Quarter: 2021Q3

REPORT INFORMATION
  Report Type: Spontaneous
  Country: GB (occurrence: GB)
  Receive Date: 20210831
  Receipt Date: 20210831
  Transmission Date: 20211014
  Serious: Yes (Other)
  Sender: FDA-Public Use
  Company Number: GB-TORRENT-00026345

PATIENT
  Sex: Male

DRUGS (2)
  1. PANTOPRAZOLE [Suspect]
     Active Substance: PANTOPRAZOLE
     Indication: BARRETT^S OESOPHAGUS
     Dosage: ONE A DAY
     Route: 048
     Dates: start: 20210816
  2. OMEPRAZOL [Concomitant]
     Active Substance: OMEPRAZOLE
     Indication: ILL-DEFINED DISORDER
     Dosage: UNKNOWN

REACTIONS (2)
  - Movement disorder [Not Recovered/Not Resolved]
  - Renal pain [Not Recovered/Not Resolved]

NARRATIVE: CASE EVENT DATE: 20210816
